FAERS Safety Report 5832355-5 (Version None)
Quarter: 2008Q3

REPORT INFORMATION
  Report Type: 
  Country: None (occurrence: None)
  Receive Date: 20080731
  Receipt Date: 20080723
  Transmission Date: 20090109
  Serious: Yes (Hospitalization)
  Sender: FDA-Public Use
  Company Number: 2008JP003357

PATIENT
  Age: 59 Year
  Sex: Male

DRUGS (4)
  1. FUNGUARD (MICAFUNGIN) INJECTION [Suspect]
     Dosage: IV DRIP
     Route: 041
     Dates: start: 20080716, end: 20080718
  2. PANSPORIN(CEFOTIAM HYDROCHLORIDE) INJECTION [Suspect]
     Dosage: IV DRIP
     Route: 041
     Dates: end: 20080717
  3. FOSCAVIR [Suspect]
     Dates: end: 20080718
  4. LASIX [Suspect]

REACTIONS (1)
  - STEVENS-JOHNSON SYNDROME [None]
